FAERS Safety Report 5176505-5 (Version None)
Quarter: 2006Q4

REPORT INFORMATION
  Report Type: 
  Country: None (occurrence: None)
  Receive Date: 20061215
  Receipt Date: 20061208
  Transmission Date: 20070319
  Serious: Yes (Hospitalization, Other)
  Sender: FDA-Public Use
  Company Number: DE-NOVOPROD-259138

PATIENT
  Sex: Female

DRUGS (2)
  1. ACTIVELLE [Suspect]
     Indication: MENOPAUSAL SYMPTOMS
     Dosage: 1 TAB, QD
     Route: 048
     Dates: start: 20031009, end: 20060901
  2. NEXIUM [Concomitant]
     Dosage: UNK, PRN

REACTIONS (1)
  - ENDOMETRIAL CANCER [None]
